FAERS Safety Report 23196608 (Version 1)
Quarter: 2023Q4

REPORT INFORMATION
  Report Type: Spontaneous
  Country: US (occurrence: None)
  Receive Date: 20231116
  Receipt Date: 20231116
  Transmission Date: 20240110
  Serious: Yes (Life-Threatening, Other)
  Sender: FDA-Public Use
  Company Number: None

PATIENT
  Age: 35 Year
  Sex: Male
  Weight: 66.68 kg

DRUGS (8)
  1. ZYPREXA [Suspect]
     Active Substance: OLANZAPINE
     Indication: Schizophrenia
     Dosage: 1 TABLET AT BEDTIME MOUTH?
     Route: 048
     Dates: start: 20210601, end: 20210601
  2. ZYPREXA [Suspect]
     Active Substance: OLANZAPINE
     Indication: Anxiety
  3. ZYPREXA [Suspect]
     Active Substance: OLANZAPINE
     Indication: Bipolar disorder
  4. ZYPREXA [Suspect]
     Active Substance: OLANZAPINE
     Indication: Hypometabolism
  5. PROBIOTICS NOS [Concomitant]
     Active Substance: PROBIOTICS NOS
  6. MEN^S MULTI VITAMIN [Concomitant]
  7. VITAMIN D [Concomitant]
     Active Substance: VITAMIN D NOS
  8. PROTEIN [Concomitant]
     Active Substance: PROTEIN

REACTIONS (1)
  - Ligament rupture [None]

NARRATIVE: CASE EVENT DATE: 20210313
